FAERS Safety Report 6001467-8 (Version None)
Quarter: 2008Q4

REPORT INFORMATION
  Report Type: 
  Country: None (occurrence: None)
  Receive Date: 20081215
  Receipt Date: 20071105
  Transmission Date: 20090506
  Serious: No
  Sender: FDA-Public Use
  Company Number: US-AMGEN-KDL251367

PATIENT
  Sex: Female

DRUGS (2)
  1. ENBREL [Suspect]
     Indication: RHEUMATOID ARTHRITIS
     Route: 058
     Dates: start: 20070501
  2. METHOTREXATE [Concomitant]
     Dates: start: 20060901

REACTIONS (11)
  - BLEPHARITIS [None]
  - BLOOD PRESSURE INCREASED [None]
  - FOOT DEFORMITY [None]
  - FUNGAL INFECTION [None]
  - HYPERHIDROSIS [None]
  - INJECTION SITE RASH [None]
  - MUSCULAR WEAKNESS [None]
  - MUSCULOSKELETAL STIFFNESS [None]
  - OEDEMA PERIPHERAL [None]
  - STOMATITIS [None]
  - TREMOR [None]
